FAERS Safety Report 4765634-3 (Version None)
Quarter: 2005Q3

REPORT INFORMATION
  Report Type: 
  Country: None (occurrence: None)
  Receive Date: 20050906
  Receipt Date: 20050818
  Transmission Date: 20060218
  Serious: Yes (Death, Hospitalization)
  Sender: FDA-Public Use
  Company Number: GBT050802183

PATIENT
  Age: 68 Year
  Sex: Female
  Weight: 168 kg

DRUGS (9)
  1. GEMCITABINE HYDROCHLORIDE-IV (GEMCITABINE) [Suspect]
     Indication: OVARIAN CANCER
  2. CARBOPLATIN [Suspect]
     Indication: OVARIAN CANCER
  3. OMEPRAZOLE [Concomitant]
  4. MAXOLON [Concomitant]
  5. LEVOTHYROXINE SODIUM [Concomitant]
  6. ORAMORPH SR [Concomitant]
  7. CO- DANTHRAMER [Concomitant]
  8. MORPHINE SULFATE [Concomitant]
  9. IBUPROFEN [Concomitant]

REACTIONS (27)
  - ABDOMINAL DISTENSION [None]
  - ABDOMINAL PAIN [None]
  - ANAEMIA [None]
  - ASCITES [None]
  - BACK PAIN [None]
  - BLOOD ALKALINE PHOSPHATASE INCREASED [None]
  - C-REACTIVE PROTEIN INCREASED [None]
  - CHILLS [None]
  - DRUG TOXICITY [None]
  - HAEMOGLOBIN DECREASED [None]
  - HEPATOMEGALY [None]
  - LIVER DISORDER [None]
  - MALAISE [None]
  - MENTAL STATUS CHANGES [None]
  - NEUTROPENIA [None]
  - NEUTROPHIL COUNT INCREASED [None]
  - OEDEMA PERIPHERAL [None]
  - PLATELET COUNT INCREASED [None]
  - PLEURAL EFFUSION [None]
  - PYREXIA [None]
  - RENAL IMPAIRMENT [None]
  - THROMBOCYTOPENIA [None]
  - TREMOR [None]
  - URINE ALBUMIN/CREATININE RATIO INCREASED [None]
  - VOMITING [None]
  - WHITE BLOOD CELL COUNT DECREASED [None]
  - WHITE BLOOD CELL COUNT INCREASED [None]
